FAERS Safety Report 10616703 (Version 1)
Quarter: 2014Q4

REPORT INFORMATION
  Report Type: Spontaneous
  Country: US (occurrence: None)
  Receive Date: 20141126
  Receipt Date: 20141126
  Transmission Date: 20150529
  Serious: Yes (Other)
  Sender: FDA-Public Use
  Company Number: None

PATIENT
  Age: 30 Year
  Sex: Male
  Weight: 92.99 kg

DRUGS (3)
  1. LAMOTRIGINE. [Concomitant]
     Active Substance: LAMOTRIGINE
  2. DUOXETINE [Suspect]
     Active Substance: DULOXETINE
     Dosage: 1 DY
     Route: 048
     Dates: start: 20140812, end: 20141107
  3. BUPROPRION [Concomitant]
     Active Substance: BUPROPION

REACTIONS (2)
  - Feeling abnormal [None]
  - Blood pressure increased [None]

NARRATIVE: CASE EVENT DATE: 20141107
